FAERS Safety Report 6894664-0 (Version None)
Quarter: 2010Q3

REPORT INFORMATION
  Report Type: 
  Country: None (occurrence: None)
  Receive Date: 20100802
  Receipt Date: 20100722
  Transmission Date: 20110219
  Serious: Yes (Hospitalization, Other)
  Sender: FDA-Public Use
  Company Number: US-SANOFI-AVENTIS-2010SA028163

PATIENT
  Age: 68 Year
  Sex: Female
  Weight: 105.9 kg

DRUGS (11)
  1. MULTAQ [Suspect]
     Indication: ATRIAL FIBRILLATION
     Route: 048
     Dates: start: 20090812, end: 20090816
  2. MULTAQ [Suspect]
     Route: 048
     Dates: start: 20091001
  3. PREDNISONE [Suspect]
     Indication: POLYMYALGIA RHEUMATICA
     Route: 065
     Dates: end: 20100501
  4. COUMADIN [Suspect]
     Indication: ATRIAL FIBRILLATION
     Route: 048
     Dates: end: 20090819
  5. COUMADIN [Suspect]
     Route: 048
     Dates: start: 20100501
  6. ASPIRIN [Suspect]
     Route: 048
  7. LIPITOR [Concomitant]
  8. TOPROL-XL [Concomitant]
     Indication: HYPERTENSION
  9. DIOVAN HCT [Concomitant]
     Indication: HYPERTENSION
     Dosage: 160/105MG
  10. HYTRIN [Concomitant]
     Indication: HYPERTENSION
  11. PROTONIX [Concomitant]

REACTIONS (11)
  - ASTHENIA [None]
  - ATRIAL FIBRILLATION [None]
  - CONDITION AGGRAVATED [None]
  - DRUG INEFFECTIVE [None]
  - DYSPNOEA [None]
  - FATIGUE [None]
  - GASTROINTESTINAL HAEMORRHAGE [None]
  - MUSCLE SPASMS [None]
  - MYALGIA [None]
  - SOMNOLENCE [None]
  - TACHYCARDIA [None]
